FAERS Safety Report 5573894-4 (Version None)
Quarter: 2007Q4

REPORT INFORMATION
  Report Type: 
  Country: None (occurrence: None)
  Receive Date: 20071226
  Receipt Date: 20071214
  Transmission Date: 20080405
  Serious: Yes (Other)
  Sender: FDA-Public Use
  Company Number: PFIZER INC-2007071447

PATIENT
  Sex: Male
  Weight: 72.6 kg

DRUGS (7)
  1. XALATAN [Suspect]
     Indication: OPEN ANGLE GLAUCOMA
     Route: 047
  2. XAL-EASE [Suspect]
     Indication: GLAUCOMA
  3. TRAVATAN [Suspect]
  4. ALPHAGAN [Suspect]
  5. LUMIGAN [Suspect]
  6. CARDIZEM [Concomitant]
  7. LASIX [Concomitant]

REACTIONS (8)
  - EYE IRRITATION [None]
  - EYE SWELLING [None]
  - EYELID IRRITATION [None]
  - EYELID OEDEMA [None]
  - INTRAOCULAR PRESSURE INCREASED [None]
  - MEDICAL DEVICE COMPLICATION [None]
  - OVERDOSE [None]
  - PRURITUS [None]
